FAERS Safety Report 17467645 (Version 1)
Quarter: 2020Q1

REPORT INFORMATION
  Report Type: Spontaneous
  Country: DE (occurrence: DE)
  Receive Date: 20200227
  Receipt Date: 20200227
  Transmission Date: 20200409
  Serious: Yes (Other)
  Sender: FDA-Public Use
  Company Number: DE-JNJFOC-20200235666

PATIENT
  Age: 52 Year
  Sex: Female
  Weight: 118 kg

DRUGS (1)
  1. RIVAROXABAN [Suspect]
     Active Substance: RIVAROXABAN
     Indication: DEEP VEIN THROMBOSIS
     Dosage: DAILY DOSE: 2 DF DOSAGE FORM EVERY DAYS 2 SEPARATED DOSES
     Route: 048
     Dates: start: 20191209, end: 20191214

REACTIONS (3)
  - Dizziness [Recovered/Resolved]
  - Menorrhagia [Recovered/Resolved]
  - Altered state of consciousness [Recovered/Resolved]

NARRATIVE: CASE EVENT DATE: 20191211
